FAERS Safety Report 8127362-6 (Version None)
Quarter: 2012Q1

REPORT INFORMATION
  Report Type: 
  Country: None (occurrence: None)
  Receive Date: 20120210
  Receipt Date: 20120201
  Transmission Date: 20120608
  Serious: Yes (Hospitalization)
  Sender: FDA-Public Use
  Company Number: US-JNJFOC-20120201761

PATIENT
  Sex: Female
  Weight: 69.4 kg

DRUGS (16)
  1. VITAMIN D [Concomitant]
     Indication: BONE DISORDER
     Route: 065
  2. VITAMIN A [Concomitant]
     Indication: IMMUNE SYSTEM DISORDER
     Route: 065
  3. PROTONIX [Concomitant]
     Indication: BARRETT'S OESOPHAGUS
     Route: 048
  4. ATENOLOL [Concomitant]
     Indication: TREMOR
     Route: 048
  5. CYMBALTA [Concomitant]
     Indication: FIBROMYALGIA
     Route: 048
  6. FISH OIL OMEGA 3 [Concomitant]
     Indication: GENERAL PHYSICAL CONDITION
     Route: 065
  7. VANCOMYCIN [Concomitant]
     Indication: CLOSTRIDIAL INFECTION
     Dosage: 4 CAPSULES EVERY OTHER DAY
     Route: 048
     Dates: start: 20111201
  8. ESTRADIOL [Concomitant]
     Indication: HORMONE LEVEL ABNORMAL
     Route: 048
     Dates: start: 20020101
  9. PROTONIX [Concomitant]
     Indication: GASTROOESOPHAGEAL REFLUX DISEASE
     Route: 048
  10. COQ10 [Concomitant]
     Indication: CARDIAC DISORDER
     Route: 065
  11. VITAMIN A [Concomitant]
     Indication: NAIL DISORDER
     Route: 065
  12. REMICADE [Suspect]
     Indication: CROHN'S DISEASE
     Route: 042
     Dates: start: 20120107
  13. PREDNISONE TAB [Concomitant]
     Indication: CROHN'S DISEASE
     Route: 048
     Dates: start: 20120125
  14. CYMBALTA [Concomitant]
     Indication: DEPRESSION
     Route: 048
  15. TOVIAZ [Concomitant]
     Indication: BLADDER DISORDER
     Route: 048
  16. CALCIUM [Concomitant]
     Indication: BONE DISORDER
     Route: 065

REACTIONS (7)
  - HERPES VIRUS INFECTION [None]
  - INSOMNIA [None]
  - EPIGASTRIC DISCOMFORT [None]
  - BALANCE DISORDER [None]
  - MOTOR DYSFUNCTION [None]
  - BOWEL MOVEMENT IRREGULARITY [None]
  - IMMUNE SYSTEM DISORDER [None]
